FAERS Safety Report 10234850 (Version 4)
Quarter: 2014Q4

REPORT INFORMATION
  Report Type: Spontaneous
  Country: US (occurrence: US)
  Receive Date: 20140613
  Receipt Date: 20141217
  Transmission Date: 20150528
  Serious: Yes (Death, Hospitalization, Other)
  Sender: FDA-Public Use
  Company Number: US-BAYER-2014-083848

PATIENT
  Age: 61 Year
  Sex: Female

DRUGS (24)
  1. FLOMAX (TAMSULOSIN) [Concomitant]
     Dosage: 0.4 MG, QD
     Route: 048
  2. EFFEXOR XR [Concomitant]
     Active Substance: VENLAFAXINE HYDROCHLORIDE
     Dosage: 1 DF, BID
     Route: 048
  3. ENDOCET [Concomitant]
     Active Substance: ACETAMINOPHEN\OXYCODONE HYDROCHLORIDE
     Dosage: 1 DF, EVERY 6H
     Route: 048
  4. ADVAIR DISKUS [Concomitant]
     Active Substance: FLUTICASONE PROPIONATE\SALMETEROL XINAFOATE
     Dosage: 1 PUFF(S), BID
     Route: 055
  5. SOLU-MEDROL [Concomitant]
     Active Substance: METHYLPREDNISOLONE SODIUM SUCCINATE
     Dosage: 1000 MG, Q1MON
  6. DOXEPIN [Concomitant]
     Active Substance: DOXEPIN
     Dosage: 1-2 CAPS, Q4HR AS NEEDED
  7. CYANOCOBALAMIN. [Concomitant]
     Active Substance: CYANOCOBALAMIN
     Dosage: 1000 ?G, Q1MON
     Route: 030
  8. ZANAFLEX [Concomitant]
     Active Substance: TIZANIDINE HYDROCHLORIDE
     Dosage: 1 DF, QID
     Route: 048
  9. PROMETHAZINE [Concomitant]
     Active Substance: PROMETHAZINE\PROMETHAZINE HYDROCHLORIDE
     Indication: NAUSEA
     Dosage: 1 DF, EVERY 6H PRN
     Route: 048
  10. BETASERON [Suspect]
     Active Substance: INTERFERON BETA-1B
     Indication: MULTIPLE SCLEROSIS
     Dosage: UNK
     Dates: end: 20140221
  11. BETASERON [Suspect]
     Active Substance: INTERFERON BETA-1B
     Indication: MULTIPLE SCLEROSIS
     Dosage: UNK
     Dates: start: 20140315, end: 20140519
  12. POLYETHYLENE GLYCOL [Concomitant]
     Active Substance: POLYETHYLENE GLYCOLS
  13. OMEPRAZOLE. [Concomitant]
     Active Substance: OMEPRAZOLE
     Dosage: 1 DF, QD
     Route: 048
  14. BETASERON [Suspect]
     Active Substance: INTERFERON BETA-1B
     Indication: MULTIPLE SCLEROSIS
     Dosage: 0.25 MG, QOD
     Dates: start: 199908
  15. MELOXICAM. [Concomitant]
     Active Substance: MELOXICAM
     Dosage: 2 DF, HS
     Route: 048
  16. SINGULAIR [Concomitant]
     Active Substance: MONTELUKAST SODIUM
     Dosage: 1 DF, HS
  17. XANAX [Concomitant]
     Active Substance: ALPRAZOLAM
     Dosage: 0.5 DF, BID
     Route: 048
  18. AMIODARONE [Concomitant]
     Active Substance: AMIODARONE
     Dosage: 1 DF, BID
  19. TRAZODONE [Concomitant]
     Active Substance: TRAZODONE HYDROCHLORIDE
     Dosage: 1.5 DF, HS
     Route: 048
  20. AMLODIPINE [Concomitant]
     Active Substance: AMLODIPINE BESYLATE
     Dosage: 1 DF, QD
  21. BETASERON [Suspect]
     Active Substance: INTERFERON BETA-1B
     Indication: MULTIPLE SCLEROSIS
     Dosage: UNK
     Dates: start: 19981212
  22. VITAMIN D [Concomitant]
     Active Substance: CHOLECALCIFEROL
     Dosage: UNK UNK, OW
  23. SIMVASTATIN. [Concomitant]
     Active Substance: SIMVASTATIN
     Dosage: 1 DF, HS
  24. CARISOPRODOL. [Concomitant]
     Active Substance: CARISOPRODOL
     Dosage: 1 DF, QID
     Route: 048

REACTIONS (17)
  - Cardio-respiratory arrest [Fatal]
  - Tachycardia [None]
  - Dyspnoea [None]
  - Acute kidney injury [Fatal]
  - Chronic obstructive pulmonary disease [None]
  - Asthenia [None]
  - Pelvic haematoma [None]
  - Bronchitis [None]
  - Atrial fibrillation [Fatal]
  - Coronary artery disease [None]
  - Hypocalcaemia [Fatal]
  - Cyanosis [None]
  - Hypoxia [None]
  - Seizure [None]
  - Intra-abdominal haematoma [None]
  - Shock haemorrhagic [Fatal]
  - Fatigue [None]

NARRATIVE: CASE EVENT DATE: 2014
